FAERS Safety Report 15074969 (Version 1)
Quarter: 2018Q2

REPORT INFORMATION
  Report Type: Report from Study
  Country: US (occurrence: US)
  Receive Date: 20180627
  Receipt Date: 20180627
  Transmission Date: 20180711
  Serious: No
  Sender: FDA-Public Use
  Company Number: US-SAOL THERAPEUTICS-2017SAO01984

PATIENT
  Age: 47 Year
  Sex: Female

DRUGS (9)
  1. BACLOFEN. [Suspect]
     Active Substance: BACLOFEN
     Dosage: 36.25 ?G, \DAY
     Route: 037
     Dates: end: 20160922
  2. BUPIVACAINE. [Suspect]
     Active Substance: BUPIVACAINE
     Dosage: 1.873 MG, \DAY
     Route: 037
     Dates: start: 20160922, end: 20170621
  3. BUPIVACAINE. [Suspect]
     Active Substance: BUPIVACAINE
     Dosage: 2.194 MG, \DAY
     Route: 037
  4. FENTANYL. [Suspect]
     Active Substance: FENTANYL
     Dosage: 290.0 ?G, \DAY
     Route: 037
     Dates: end: 20160922
  5. BUPIVACAINE. [Suspect]
     Active Substance: BUPIVACAINE
     Dosage: 1.551 MG, \DAY
     Route: 037
     Dates: end: 20160922
  6. BACLOFEN. [Suspect]
     Active Substance: BACLOFEN
     Dosage: 51.26 ?G, \DAY
     Route: 037
  7. FENTANYL. [Suspect]
     Active Substance: FENTANYL
     Dosage: 350.1 ?G, \DAY
     Route: 037
     Dates: start: 20160922, end: 20170621
  8. FENTANYL. [Suspect]
     Active Substance: FENTANYL
     Dosage: 410.1 ?G, \DAY
     Route: 037
  9. BACLOFEN. [Suspect]
     Active Substance: BACLOFEN
     Dosage: 43.76 ?G, \DAY
     Route: 037
     Dates: start: 20160922, end: 20170621

REACTIONS (5)
  - Oedema peripheral [Not Recovered/Not Resolved]
  - Constipation [Not Recovered/Not Resolved]
  - Urinary tract disorder [Not Recovered/Not Resolved]
  - Unevaluable event [Not Recovered/Not Resolved]
  - Urinary incontinence [Not Recovered/Not Resolved]

NARRATIVE: CASE EVENT DATE: 20170921
